FAERS Safety Report 12136434 (Version 1)
Quarter: 2016Q1

REPORT INFORMATION
  Report Type: Spontaneous
  Country: US (occurrence: US)
  Receive Date: 20160302
  Receipt Date: 20160302
  Transmission Date: 20160526
  Serious: No
  Sender: FDA-Public Use
  Company Number: US-PFIZER INC-2016122766

PATIENT
  Age: 66 Year
  Sex: Female
  Weight: 57 kg

DRUGS (22)
  1. VFEND [Suspect]
     Active Substance: VORICONAZOLE
     Indication: PROPHYLAXIS
     Dosage: 200 MG, ONE IN THE MORNING AND ONE AT NIGHT, OVAL TABLET
     Route: 048
     Dates: start: 201511
  2. PREDNISONE. [Concomitant]
     Active Substance: PREDNISONE
     Dosage: 5MG ONCE DAILY
  3. PEPCID [Concomitant]
     Active Substance: FAMOTIDINE
     Indication: GRAFT VERSUS HOST DISEASE
     Dosage: UNKNOWN DOSE TWICE DAILY
     Dates: start: 201510
  4. SINGULAIR [Concomitant]
     Active Substance: MONTELUKAST SODIUM
     Indication: ASTHMA
     Dosage: ONE DAILY
  5. VITAMIN D2 [Concomitant]
     Active Substance: ERGOCALCIFEROL
     Indication: OSTEOPENIA
     Dosage: 50000 UNITS EVERY OTHER WEEK
  6. VALTREX [Concomitant]
     Active Substance: VALACYCLOVIR HYDROCHLORIDE
     Indication: PROPHYLAXIS
     Dosage: 500MG ONCE DAILY
     Dates: start: 201510
  7. TACROLIMUS. [Concomitant]
     Active Substance: TACROLIMUS
     Indication: PROPHYLAXIS
     Dosage: 1MG TWICE DAILY
     Dates: start: 201510
  8. HYDROXYZINE [Concomitant]
     Active Substance: HYDROXYZINE\HYDROXYZINE HYDROCHLORIDE
     Indication: PRURITUS
     Dosage: AS NEEDED
  9. SYMBICORT [Concomitant]
     Active Substance: BUDESONIDE\FORMOTEROL FUMARATE DIHYDRATE
     Indication: ASTHMA
     Dosage: TWO PUFFS MORNING AND NIGHT
  10. ALLEGRA [Concomitant]
     Active Substance: FEXOFENADINE HYDROCHLORIDE
     Indication: ASTHMA
     Dosage: ONE DAILY
  11. MAGNESIUM [Concomitant]
     Active Substance: MAGNESIUM
     Indication: BLOOD MAGNESIUM DECREASED
     Dosage: 500MG THREE TIMES DAILY
  12. OXYCODONE [Concomitant]
     Active Substance: OXYCODONE
     Indication: PAIN
     Dosage: AS NEEDED
  13. ZOFRAN [Concomitant]
     Active Substance: ONDANSETRON HYDROCHLORIDE
     Indication: NAUSEA
     Dosage: AS NEEDED
  14. FLONASE [Concomitant]
     Active Substance: FLUTICASONE PROPIONATE
     Indication: ASTHMA
     Dosage: ONE SQUIRT TO EACH NOSTRIL TWICE DAILY
  15. BACTRIM [Concomitant]
     Active Substance: SULFAMETHOXAZOLE\TRIMETHOPRIM
     Indication: PROPHYLAXIS
     Dosage: [SULFAMETHOXAZOLE 400 MG] / [TRIMETHOPRIM 80 MG] ONE DAILY
     Dates: start: 201512
  16. PREDNISONE. [Concomitant]
     Active Substance: PREDNISONE
     Indication: GRAFT VERSUS HOST DISEASE
     Dosage: 90 MG, DAILY
     Dates: start: 2015
  17. PROMETHAZINE [Concomitant]
     Active Substance: PROMETHAZINE\PROMETHAZINE HYDROCHLORIDE
     Indication: NAUSEA
     Dosage: AS NEEDED
  18. PROTONIX [Concomitant]
     Active Substance: PANTOPRAZOLE SODIUM
     Dosage: UNK
  19. LEVAQUIN [Concomitant]
     Active Substance: LEVOFLOXACIN
     Indication: PROPHYLAXIS
     Dosage: UNK
  20. ARMOUR THYROID [Concomitant]
     Active Substance: THYROID, PORCINE
     Indication: THYROID DISORDER
     Dosage: 90MG ONCE DAILY
  21. VITAMIN B1 /00056102/ [Concomitant]
     Dosage: 100MG TWICE DAILY
  22. PANTOPRAZOLE SODIUM. [Concomitant]
     Active Substance: PANTOPRAZOLE SODIUM
     Indication: ULCER
     Dosage: 40 MG, ONE TABLET TWICE DAILY

REACTIONS (7)
  - Hiccups [Unknown]
  - Abdominal pain upper [Recovered/Resolved]
  - Abdominal discomfort [Not Recovered/Not Resolved]
  - Product use issue [Not Recovered/Not Resolved]
  - Insomnia [Not Recovered/Not Resolved]
  - Weight decreased [Unknown]
  - Decreased appetite [Not Recovered/Not Resolved]

NARRATIVE: CASE EVENT DATE: 201511
